FAERS Safety Report 24396357 (Version 3)
Quarter: 2025Q3

REPORT INFORMATION
  Report Type: Spontaneous
  Country: US (occurrence: US)
  Receive Date: 20241004
  Receipt Date: 20250905
  Transmission Date: 20251021
  Serious: No
  Sender: MERCK SHARP & DOHME LLC
  Company Number: None

PATIENT
  Sex: Female
  Weight: 113.4 kg

DRUGS (13)
  1. WINREVAIR [Suspect]
     Active Substance: SOTATERCEPT-CSRK
     Indication: Pulmonary arterial hypertension
     Route: 058
     Dates: start: 20240806, end: 202506
  2. WINREVAIR [Suspect]
     Active Substance: SOTATERCEPT-CSRK
  3. WINREVAIR [Suspect]
     Active Substance: SOTATERCEPT-CSRK
  4. WINREVAIR [Suspect]
     Active Substance: SOTATERCEPT-CSRK
  5. ORENITRAM [Suspect]
     Active Substance: TREPROSTINIL
     Indication: Pulmonary arterial hypertension
     Route: 048
     Dates: start: 20171003
  6. ORENITRAM [Suspect]
     Active Substance: TREPROSTINIL
     Indication: Pulmonary arterial hypertension
     Dosage: DOSE DESCRIPTION : 2.5 MILLIGRAM, Q3W?DAILY DOSE : 0.118 MILLIGRAM?REGIMEN DOSE : 2.5  MILLIGRAM
     Route: 048
     Dates: start: 20190117
  7. TYLENOL [Concomitant]
     Active Substance: ACETAMINOPHEN
  8. OPSUMIT [Concomitant]
     Active Substance: MACITENTAN
  9. ELIQUIS [Concomitant]
     Active Substance: APIXABAN
  10. SILDENAFIL CITRATE [Concomitant]
     Active Substance: SILDENAFIL CITRATE
  11. MAGNESIUM [Concomitant]
     Active Substance: MAGNESIUM
  12. METOPROLOL [Concomitant]
     Active Substance: METOPROLOL
  13. FUROSEMIDE [Concomitant]
     Active Substance: FUROSEMIDE

REACTIONS (5)
  - Haemoglobin abnormal [Not Recovered/Not Resolved]
  - Haemoglobin increased [Not Recovered/Not Resolved]
  - Epistaxis [Unknown]
  - Mouth haemorrhage [Unknown]
  - Full blood count increased [Unknown]

NARRATIVE: CASE EVENT DATE: 20240101
